FAERS Safety Report 15139567 (Version 1)
Quarter: 2018Q3

REPORT INFORMATION
  Report Type: Spontaneous
  Country: US (occurrence: US)
  Receive Date: 20180618
  Receipt Date: 20180618
  Transmission Date: 20181010
  Serious: Yes (Hospitalization)
  Sender: FDA-Public Use
  Company Number: None

PATIENT
  Age: 69 Year
  Sex: Male

DRUGS (11)
  1. ADCIRCA [Suspect]
     Active Substance: TADALAFIL
     Indication: PULMONARY HYPERTENSION
     Route: 048
     Dates: start: 20170317
  2. CLOPIDOGREL [Concomitant]
     Active Substance: CLOPIDOGREL BISULFATE
  3. SILDENAFIL. [Concomitant]
     Active Substance: SILDENAFIL
  4. ATORVASTATIN [Concomitant]
     Active Substance: ATORVASTATIN
  5. FINASTERIDE. [Concomitant]
     Active Substance: FINASTERIDE
  6. FUROSEMIDE. [Concomitant]
     Active Substance: FUROSEMIDE
  7. TUDORZA PRESSAIR [Concomitant]
     Active Substance: ACLIDINIUM BROMIDE
  8. LOSARTAN. [Concomitant]
     Active Substance: LOSARTAN
  9. SPIRONOLACTONE. [Concomitant]
     Active Substance: SPIRONOLACTONE
  10. LANTUS [Concomitant]
     Active Substance: INSULIN GLARGINE
  11. OXYCODONE/APAP [Concomitant]
     Active Substance: ACETAMINOPHEN\OXYCODONE HYDROCHLORIDE

REACTIONS (1)
  - Malaise [None]

NARRATIVE: CASE EVENT DATE: 20180530
